FAERS Safety Report 15967067 (Version 1)
Quarter: 2019Q1

REPORT INFORMATION
  Report Type: Report from Study
  Country: IL (occurrence: IL)
  Receive Date: 20190215
  Receipt Date: 20190215
  Transmission Date: 20190418
  Serious: Yes (Other)
  Sender: FDA-Public Use
  Company Number: IL-SA-2019SA038441

PATIENT
  Age: 64 Year
  Sex: Male

DRUGS (2)
  1. INSULIN GLARGINE/LIXISENATIDE [Suspect]
     Active Substance: INSULIN GLARGINE\LIXISENATIDE
     Dosage: 36 DOSE STEPS, QD
     Route: 058
     Dates: start: 20181219
  2. SOLOSTAR [Suspect]
     Active Substance: DEVICE
     Dosage: 36 DOSE STEPS, QD
     Route: 058
     Dates: start: 20181219

REACTIONS (4)
  - Gait disturbance [Not Recovered/Not Resolved]
  - Neuropathy peripheral [Not Recovered/Not Resolved]
  - Condition aggravated [Not Recovered/Not Resolved]
  - Blood glucose fluctuation [Not Recovered/Not Resolved]
